FAERS Safety Report 6381583-1 (Version None)
Quarter: 2009Q3

REPORT INFORMATION
  Report Type: 
  Country: None (occurrence: None)
  Receive Date: 20090925
  Receipt Date: 20090915
  Transmission Date: 20100115
  Serious: Yes (Hospitalization)
  Sender: FDA-Public Use
  Company Number: TCI2009A00526

PATIENT
  Age: 81 Year
  Sex: Female

DRUGS (5)
  1. TAKEPRON OD TABLETS 15 (LANSOPRAZOLE) [Suspect]
     Indication: GASTROOESOPHAGEAL REFLUX DISEASE
     Dosage: 15 MG (15 MG,1 IN 1 D) PER ORAL
     Route: 048
     Dates: end: 20080805
  2. AZULFIDINE EN-TABS [Concomitant]
  3. LOXONIN (LOXOPROFEN SODIUM) [Concomitant]
  4. MUCOSTA (REBAMIPIDE) [Concomitant]
  5. RHEUMATREX [Concomitant]

REACTIONS (2)
  - COLITIS COLLAGENOUS [None]
  - LARGE INTESTINAL ULCER [None]
